FAERS Safety Report 12178214 (Version 1)
Quarter: 2016Q1

REPORT INFORMATION
  Report Type: Spontaneous
  Country: US (occurrence: None)
  Receive Date: 20160314
  Receipt Date: 20160314
  Transmission Date: 20160526
  Serious: Yes (Hospitalization)
  Sender: FDA-Public Use
  Company Number: None

PATIENT
  Age: 74 Year
  Sex: Female
  Weight: 53.52 kg

DRUGS (11)
  1. SERTRALINE [Concomitant]
     Active Substance: SERTRALINE HYDROCHLORIDE
  2. PERCOCET [Concomitant]
     Active Substance: ACETAMINOPHEN\OXYCODONE HYDROCHLORIDE
  3. SINGULAIR [Concomitant]
     Active Substance: MONTELUKAST SODIUM
  4. MOVANTIK [Suspect]
     Active Substance: NALOXEGOL OXALATE
     Dosage: 1 PILL QD ORAL
     Route: 048
     Dates: start: 20160309, end: 20160310
  5. CLONIDINE. [Concomitant]
     Active Substance: CLONIDINE
  6. LOSARTAN. [Concomitant]
     Active Substance: LOSARTAN
  7. LABETALOL [Concomitant]
     Active Substance: LABETALOL\LABETALOL HYDROCHLORIDE
  8. DURAGESIC [Concomitant]
     Active Substance: FENTANYL
  9. CELEBREX [Concomitant]
     Active Substance: CELECOXIB
  10. OMEPRAZOLE. [Concomitant]
     Active Substance: OMEPRAZOLE
  11. SYMBICORT [Concomitant]
     Active Substance: BUDESONIDE\FORMOTEROL FUMARATE DIHYDRATE

REACTIONS (6)
  - Pyrexia [None]
  - Vomiting [None]
  - Diarrhoea [None]
  - Nausea [None]
  - Abdominal pain [None]
  - Cholecystitis acute [None]

NARRATIVE: CASE EVENT DATE: 20160310
